FAERS Safety Report 17624142 (Version 9)
Quarter: 2020Q3

REPORT INFORMATION
  Report Type: Report from Study
  Country: CO (occurrence: CO)
  Receive Date: 20200403
  Receipt Date: 20200901
  Transmission Date: 20201102
  Serious: Yes (Other)
  Sender: FDA-Public Use
  Company Number: CO-JNJFOC-20200339903

PATIENT
  Age: 54 Year
  Sex: Female
  Weight: 64 kg

DRUGS (5)
  1. SIMPONI [Suspect]
     Active Substance: GOLIMUMAB
     Dosage: 8 WEEKS
     Route: 042
     Dates: start: 20190506, end: 20200206
  2. SIMPONI [Suspect]
     Active Substance: GOLIMUMAB
     Route: 058
     Dates: start: 20170808, end: 20181013
  3. SIMPONI [Suspect]
     Active Substance: GOLIMUMAB
     Route: 058
     Dates: start: 20200326, end: 20200530
  4. SIMPONI [Suspect]
     Active Substance: GOLIMUMAB
     Dosage: WEEK 4
     Route: 042
     Dates: start: 20190329, end: 20190329
  5. SIMPONI [Suspect]
     Active Substance: GOLIMUMAB
     Indication: ANKYLOSING SPONDYLITIS
     Dosage: WEEK 0
     Route: 042
     Dates: start: 20190222, end: 20190222

REACTIONS (15)
  - Endometrial hyperplasia [Recovered/Resolved]
  - Cystitis [Recovered/Resolved]
  - Helicobacter infection [Not Recovered/Not Resolved]
  - Peripheral swelling [Recovering/Resolving]
  - Product dose omission issue [Unknown]
  - Fibromyalgia [Unknown]
  - Ankylosing spondylitis [Not Recovered/Not Resolved]
  - Fall [Unknown]
  - Headache [Recovering/Resolving]
  - Dysphonia [Recovering/Resolving]
  - Hepatic fibrosis [Not Recovered/Not Resolved]
  - Drug ineffective [Unknown]
  - Thyroid atrophy [Unknown]
  - Oropharyngeal pain [Recovering/Resolving]
  - Metabolic syndrome [Unknown]

NARRATIVE: CASE EVENT DATE: 2020
